FAERS Safety Report 10027431 (Version 2)
Quarter: 2014Q2

REPORT INFORMATION
  Report Type: Spontaneous
  Country: US (occurrence: US)
  Receive Date: 20140321
  Receipt Date: 20140408
  Transmission Date: 20141212
  Serious: No
  Sender: FDA-Public Use
  Company Number: US-009507513-1403USA009291

PATIENT
  Sex: Female

DRUGS (1)
  1. DULERA [Suspect]
     Indication: PLEURAL EFFUSION
     Dosage: 4 INHALATIONS DAILY, 2 PUFFS IN MORNING AND 2 PUFFS AT NIGHT
     Route: 055
     Dates: start: 20140221

REACTIONS (5)
  - Dyspnoea [Unknown]
  - Drug ineffective for unapproved indication [Unknown]
  - Drug dose omission [Unknown]
  - Drug administration error [Unknown]
  - Product quality issue [Unknown]
